FAERS Safety Report 5059064-7 (Version None)
Quarter: 2006Q3

REPORT INFORMATION
  Report Type: 
  Country: None (occurrence: None)
  Receive Date: 20060719
  Receipt Date: 20060706
  Transmission Date: 20061208
  Serious: Yes (Life-Threatening, Hospitalization)
  Sender: FDA-Public Use
  Company Number: 14364

PATIENT
  Age: 65 Year
  Sex: Female

DRUGS (22)
  1. FLUOROURACIL [Suspect]
     Indication: NEUROENDOCRINE TUMOUR
     Dosage: 2490 MG PER_CYCLE IV
     Route: 042
     Dates: start: 20060426, end: 20060428
  2. FLUOROURACIL [Suspect]
     Indication: PANCREATIC DISORDER
     Dosage: 2490 MG PER_CYCLE IV
     Route: 042
     Dates: start: 20060426, end: 20060428
  3. LEUCOVORIN CALCIUM [Suspect]
     Indication: NEUROENDOCRINE TUMOUR
     Dosage: 390 MG PER_CYCLE IV
     Route: 042
     Dates: start: 20060428, end: 20060428
  4. LEUCOVORIN CALCIUM [Suspect]
     Indication: PANCREATIC DISORDER
     Dosage: 390 MG PER_CYCLE IV
     Route: 042
     Dates: start: 20060428, end: 20060428
  5. OXALIPLATIN [Suspect]
     Indication: NEUROENDOCRINE TUMOUR
     Dosage: 125 MG PER_CYCLE IV
     Route: 042
     Dates: start: 20060428, end: 20060428
  6. OXALIPLATIN [Suspect]
     Indication: PANCREATIC DISORDER
     Dosage: 125 MG PER_CYCLE IV
     Route: 042
     Dates: start: 20060428, end: 20060428
  7. AVASTIN [Suspect]
     Indication: NEUROENDOCRINE TUMOUR
     Dosage: 375 MG PER_CYCLE IV
     Route: 042
     Dates: start: 20060428, end: 20060428
  8. AVASTIN [Suspect]
     Indication: PANCREATIC DISORDER
     Dosage: 375 MG PER_CYCLE IV
     Route: 042
     Dates: start: 20060428, end: 20060428
  9. DEXAMETHASONE TAB [Suspect]
     Dosage: 10 MG PER_CYCLE IV
     Route: 042
     Dates: start: 20060102, end: 20060428
  10. PALONOSETRON [Suspect]
     Dosage: 0.25 MG PER_CYCLE IV
     Route: 042
     Dates: start: 20060102, end: 20060428
  11. ACETAMINOPHEN AND HYDROCODONE BITARTRATE [Concomitant]
  12. PANCRELIPASE [Concomitant]
  13. CITALOPRAM HYDROBROMIDE [Concomitant]
  14. PROCHLORPERAZINE TAB [Concomitant]
  15. LORAZEPAM [Concomitant]
  16. GRANISETRON  HCL [Concomitant]
  17. HYDROCHLOROTHIAZIDE [Concomitant]
  18. DOCUSATE SODIUM [Concomitant]
  19. OXYCODONE HCL [Concomitant]
  20. PANTOPRAZOLE SODIUM [Concomitant]
  21. SUCRALFATE [Concomitant]
  22. AMLODIPINE [Concomitant]

REACTIONS (9)
  - ABDOMINAL PAIN [None]
  - AORTIC DISSECTION [None]
  - AORTIC THROMBOSIS [None]
  - CHEST PAIN [None]
  - DYSPNOEA [None]
  - HAEMATEMESIS [None]
  - HAEMATOMA [None]
  - HYPERTENSION [None]
  - VOMITING [None]
